FAERS Safety Report 14754674 (Version 1)
Quarter: 2018Q2

REPORT INFORMATION
  Report Type: Report from Study
  Country: US (occurrence: US)
  Receive Date: 20180413
  Receipt Date: 20180413
  Transmission Date: 20180711
  Serious: Yes (Other)
  Sender: FDA-Public Use
  Company Number: US-ROCHE-2102467

PATIENT
  Sex: Male
  Weight: 123.94 kg

DRUGS (5)
  1. LOVENOX [Concomitant]
     Active Substance: ENOXAPARIN SODIUM
     Indication: DEEP VEIN THROMBOSIS
  2. REVLIMID [Suspect]
     Active Substance: LENALIDOMIDE
     Indication: MANTLE CELL LYMPHOMA
     Dosage: TAKE FOR 21 DAYS AND THEN STOP FOR 7 DAYS ;ONGOING: YES
     Route: 048
     Dates: start: 2015
  3. RITUXAN [Suspect]
     Active Substance: RITUXIMAB
     Indication: MANTLE CELL LYMPHOMA
     Dosage: ONGOING:YES
     Route: 042
     Dates: start: 2015
  4. REVLIMID [Suspect]
     Active Substance: LENALIDOMIDE
     Dosage: TAKE FOR 21 DAYS AND THEN STOP FOR 7 DAYS ;ONGOING: NO
     Route: 048
     Dates: start: 2015
  5. PLAVIX [Concomitant]
     Active Substance: CLOPIDOGREL BISULFATE

REACTIONS (12)
  - Deep vein thrombosis [Unknown]
  - Pruritus generalised [Recovered/Resolved]
  - Fatigue [Unknown]
  - Fall [Unknown]
  - Limb discomfort [Not Recovered/Not Resolved]
  - Neuropathy peripheral [Not Recovered/Not Resolved]
  - Coma [Unknown]
  - Insomnia [Unknown]
  - Pruritus [Recovered/Resolved]
  - Lethargy [Not Recovered/Not Resolved]
  - Weight decreased [Unknown]
  - Weight increased [Unknown]
